FAERS Safety Report 17038844 (Version 1)
Quarter: 2019Q4

REPORT INFORMATION
  Report Type: Spontaneous
  Country: PT (occurrence: PT)
  Receive Date: 20191115
  Receipt Date: 20191115
  Transmission Date: 20200122
  Serious: Yes (Other)
  Sender: FDA-Public Use
  Company Number: PT-009507513-1911PRT005366

PATIENT
  Sex: Male

DRUGS (4)
  1. CALCIUM SANDOZ FORTE [Concomitant]
     Dosage: 1500 MG, DAILY
  2. GLUCOSAMINE [Concomitant]
     Active Substance: GLUCOSAMINE
     Dosage: 1500 MG, DAILY
  3. ROSUVASTATIN. [Concomitant]
     Active Substance: ROSUVASTATIN
     Dosage: 10 MILLIGRAM, DAILY
  4. BCG LIVE [Suspect]
     Active Substance: BACILLUS CALMETTE-GUERIN SUBSTRAIN TICE LIVE ANTIGEN
     Indication: BLADDER CANCER
     Dosage: 6 WEEKLY TREATMENT OF INDUCTION; FOLLOWED BY MAINTENANCE TREATMENT WITH WEEKLY ADMINISTRATION EVERY
     Route: 043
     Dates: start: 2010, end: 2010

REACTIONS (11)
  - Malignant neoplasm progression [Unknown]
  - Renal colic [Unknown]
  - Anaemia [Unknown]
  - Spinal pain [Unknown]
  - Paraesthesia [Unknown]
  - Product intolerance [Unknown]
  - Anxiety disorder [Unknown]
  - Pollakiuria [Unknown]
  - Thrombocytopenia [Unknown]
  - Inappropriate schedule of product administration [Unknown]
  - Dysuria [Unknown]

NARRATIVE: CASE EVENT DATE: 2010
